FAERS Safety Report 9208083 (Version 2)
Quarter: 2013Q3

REPORT INFORMATION
  Report Type: Spontaneous
  Country: US (occurrence: US)
  Receive Date: 20130403
  Receipt Date: 20130712
  Transmission Date: 20140515
  Serious: No
  Sender: FDA-Public Use
  Company Number: US-009507513-1304USA000796

PATIENT
  Sex: Male
  Weight: 90.98 kg

DRUGS (7)
  1. VICTRELIS [Suspect]
     Indication: CHRONIC HEPATITIS C
     Dosage: 800 MG, TID
     Route: 048
     Dates: start: 20130221, end: 2013
  2. VICTRELIS [Suspect]
     Dosage: 800 MG, THREE TIMES A DAY EVERY 7 TO 9 HOURS W/FOOD
     Route: 048
     Dates: start: 201303, end: 20130617
  3. RIBAPAK [Suspect]
     Dosage: UNK
     Dates: end: 20130617
  4. PEGASYS [Suspect]
     Dosage: UNK
     Dates: end: 20130617
  5. AMLODIPINE BESYLATE (+) BENAZEPRIL HYDROCHLORIDE [Concomitant]
  6. HYDROCHLOROTHIAZIDE [Concomitant]
     Route: 048
  7. LEVOTHYROXINE SODIUM [Concomitant]

REACTIONS (3)
  - Thyroid function test abnormal [Unknown]
  - Headache [Unknown]
  - Urticaria [Unknown]
